FAERS Safety Report 18322497 (Version 1)
Quarter: 2020Q3

REPORT INFORMATION
  Report Type: Spontaneous
  Country: US (occurrence: US)
  Receive Date: 20200928
  Receipt Date: 20200928
  Transmission Date: 20201103
  Serious: Yes (Death)
  Sender: FDA-Public Use
  Company Number: None

PATIENT
  Age: 50 Year
  Sex: Female
  Weight: 84.3 kg

DRUGS (12)
  1. GABAPENTIN 300 MG DAILY AS NEEDED [Concomitant]
     Dates: start: 20160127
  2. ALBUTEROL HFA [Concomitant]
     Active Substance: ALBUTEROL SULFATE
     Dates: start: 20180105
  3. DULERA 200/5 MCG 2 PUFFS TWICE DAILY [Concomitant]
     Dates: start: 20160210
  4. OXYCODONE?ACETAMINOPHEN 7.5/325 MG 1 TABLET AS NEEDED [Concomitant]
     Dates: start: 20151005
  5. AMLODIPINE 10 MG DAILY [Concomitant]
     Dates: start: 20140524
  6. MINOCYCLINE 50 MG DAILY [Concomitant]
     Dates: start: 20190710
  7. OMEPRAZOLE 20 MG TWICE DAILY [Concomitant]
     Dates: start: 20150121
  8. NINTEDANIB [Suspect]
     Active Substance: NINTEDANIB
     Route: 048
     Dates: start: 20200828, end: 20200906
  9. IPRATROPIUM?ALBUTEROL NEBULIZERS 0.5?2.5 MG AS NEEDED [Concomitant]
     Dates: start: 20160727
  10. FAMOTIDINE 20 MG TWICE DAILY [Concomitant]
     Dates: start: 20200116
  11. IBUPROFEN 600 MG AS NEEDED [Concomitant]
     Dates: start: 20150126
  12. MYCOPHENOLATE MOFETIL 1500 MG TWICE DAILY [Concomitant]
     Dates: start: 20150126

REACTIONS (11)
  - Seizure like phenomena [None]
  - Blood glucose fluctuation [None]
  - Blood glucose decreased [None]
  - Pupil fixed [None]
  - Pulseless electrical activity [None]
  - Bradycardia [None]
  - Cardio-respiratory arrest [None]
  - Atrial fibrillation [None]
  - Cardiac arrest [None]
  - Ventricular tachycardia [None]
  - Ventricular fibrillation [None]

NARRATIVE: CASE EVENT DATE: 20200904
